FAERS Safety Report 16265406 (Version 4)
Quarter: 2021Q1

REPORT INFORMATION
  Report Type: Spontaneous
  Country: US (occurrence: US)
  Receive Date: 20190502
  Receipt Date: 20210301
  Transmission Date: 20210419
  Serious: Yes (Hospitalization)
  Sender: FDA-Public Use
  Company Number: US-SA-2019SA119832

PATIENT
  Age: 31 Year
  Sex: Female

DRUGS (1)
  1. DUPIXENT [Suspect]
     Active Substance: DUPILUMAB
     Indication: ASTHMA
     Dosage: 300 MG, QOW
     Route: 058
     Dates: start: 20190321

REACTIONS (5)
  - Headache [Unknown]
  - Hospitalisation [Recovered/Resolved]
  - Affective disorder [Recovered/Resolved]
  - Migraine [Unknown]
  - Illness [Unknown]

NARRATIVE: CASE EVENT DATE: 20190404
